FAERS Safety Report 14278490 (Version 1)
Quarter: 2017Q4

REPORT INFORMATION
  Report Type: Spontaneous
  Country: US (occurrence: US)
  Receive Date: 20171211
  Receipt Date: 20171211
  Transmission Date: 20180321
  Serious: Yes (Other)
  Sender: FDA-Public Use
  Company Number: US-OTSUKA-DJ20105257

PATIENT

DRUGS (5)
  1. METFORMIN HCL [Suspect]
     Active Substance: METFORMIN HYDROCHLORIDE
     Route: 065
  2. RISPERIDONE. [Suspect]
     Active Substance: RISPERIDONE
  3. ABILIFY [Suspect]
     Active Substance: ARIPIPRAZOLE
     Route: 065
  4. RISPERDAL [Suspect]
     Active Substance: RISPERIDONE
     Route: 065
  5. METFORMIN [Suspect]
     Active Substance: METFORMIN HYDROCHLORIDE

REACTIONS (4)
  - Blood glucose increased [Unknown]
  - Dry mouth [Unknown]
  - Thirst [Unknown]
  - Polyuria [Unknown]
